FAERS Safety Report 20112585 (Version 1)
Quarter: 2021Q4

REPORT INFORMATION
  Report Type: Spontaneous
  Country: US (occurrence: US)
  Receive Date: 20211125
  Receipt Date: 20211125
  Transmission Date: 20220303
  Serious: Yes (Hospitalization, Other)
  Sender: FDA-Public Use
  Company Number: US-NOVARTISPH-NVSC2021US266330

PATIENT
  Sex: Male

DRUGS (10)
  1. CARBOPLATIN [Suspect]
     Active Substance: CARBOPLATIN
     Indication: Hormone-refractory prostate cancer
     Dosage: UNK
     Route: 065
     Dates: start: 20180730
  2. DOCETAXEL [Suspect]
     Active Substance: DOCETAXEL
     Indication: Hormone-refractory prostate cancer
     Dosage: UNK
     Route: 065
     Dates: start: 20210105
  3. CASODEX [Suspect]
     Active Substance: BICALUTAMIDE
     Indication: Hormone-refractory prostate cancer
     Dosage: 50 MG, QD
     Route: 065
  4. ENZALUTAMIDE [Suspect]
     Active Substance: ENZALUTAMIDE
     Indication: Hormone-refractory prostate cancer
     Route: 065
  5. ZYTIGA [Suspect]
     Active Substance: ABIRATERONE ACETATE
     Indication: Hormone-refractory prostate cancer
     Route: 065
  6. PREDNISONE [Suspect]
     Active Substance: PREDNISONE
     Indication: Hormone-refractory prostate cancer
     Dosage: ONE PILL DAILY FOR TWO WEEKS
     Route: 065
  7. PREDNISONE [Suspect]
     Active Substance: PREDNISONE
     Dosage: 5 MG, BID
     Route: 065
  8. XGEVA [Suspect]
     Active Substance: DENOSUMAB
     Indication: Hormone-refractory prostate cancer
     Dosage: UNK
     Route: 065
     Dates: end: 20191119
  9. JEVTANA [Suspect]
     Active Substance: CABAZITAXEL
     Indication: Hormone-refractory prostate cancer
     Dosage: UNK
     Route: 065
     Dates: start: 20180730
  10. ABIRATERONE [Suspect]
     Active Substance: ABIRATERONE
     Indication: Hormone-refractory prostate cancer
     Dosage: 1000 MG, QD
     Route: 048
     Dates: start: 20190528, end: 20200831

REACTIONS (14)
  - Acute respiratory failure [Unknown]
  - Sepsis [Unknown]
  - Chronic left ventricular failure [Unknown]
  - Clostridium difficile colitis [Unknown]
  - Urinary tract obstruction [Unknown]
  - Hormone-refractory prostate cancer [Unknown]
  - Bullous haemorrhagic dermatosis [Unknown]
  - Osteonecrosis of jaw [Unknown]
  - Neuropathy peripheral [Unknown]
  - Prostatic specific antigen increased [Unknown]
  - Lymphadenopathy [Unknown]
  - Pain [Unknown]
  - Liver function test increased [Unknown]
  - Ejection fraction [Unknown]
